FAERS Safety Report 12759948 (Version 2)
Quarter: 2016Q4

REPORT INFORMATION
  Report Type: Spontaneous
  Country: US (occurrence: US)
  Receive Date: 20160919
  Receipt Date: 20161007
  Transmission Date: 20170207
  Serious: Yes (Hospitalization)
  Sender: FDA-Public Use
  Company Number: US-PFIZER INC-2016435362

PATIENT
  Age: 16 Year
  Sex: Male
  Weight: 82 kg

DRUGS (3)
  1. CONCERTA [Concomitant]
     Active Substance: METHYLPHENIDATE HYDROCHLORIDE
     Indication: ATTENTION DEFICIT/HYPERACTIVITY DISORDER
     Dosage: 72 MG, 1X/DAY
     Route: 048
     Dates: start: 2008
  2. EFFEXOR XR [Suspect]
     Active Substance: VENLAFAXINE HYDROCHLORIDE
     Indication: DEPRESSION
     Dosage: UNK
     Dates: start: 20160524
  3. EFFEXOR XR [Suspect]
     Active Substance: VENLAFAXINE HYDROCHLORIDE
     Indication: ATTENTION DEFICIT/HYPERACTIVITY DISORDER
     Dosage: 75 MG, 1X/DAY IN THE MORNING
     Route: 048
     Dates: start: 201606

REACTIONS (3)
  - Drug ineffective [Not Recovered/Not Resolved]
  - Suicide attempt [Unknown]
  - Product use issue [Unknown]

NARRATIVE: CASE EVENT DATE: 2016
